FAERS Safety Report 11072064 (Version 1)
Quarter: 2015Q2

REPORT INFORMATION
  Report Type: Report from Study
  Country: CZ (occurrence: CZ)
  Receive Date: 20150428
  Receipt Date: 20150428
  Transmission Date: 20150821
  Serious: Yes (Hospitalization)
  Sender: FDA-Public Use
  Company Number: PHHY2015CZ041590

PATIENT
  Age: 69 Year
  Sex: Male

DRUGS (1)
  1. STI571 [Suspect]
     Active Substance: IMATINIB MESYLATE
     Indication: CHRONIC MYELOID LEUKAEMIA
     Dosage: UNK
     Route: 065
     Dates: start: 20140411, end: 20150402

REACTIONS (4)
  - Toxicity to various agents [Not Recovered/Not Resolved]
  - Oedema peripheral [Recovered/Resolved]
  - Atypical pneumonia [Unknown]
  - Toxicity to various agents [Recovered/Resolved]

NARRATIVE: CASE EVENT DATE: 20140505
